FAERS Safety Report 15043402 (Version 3)
Quarter: 2018Q3

REPORT INFORMATION
  Report Type: Spontaneous
  Country: US (occurrence: US)
  Receive Date: 20180621
  Receipt Date: 20180802
  Transmission Date: 20181010
  Serious: Yes (Other)
  Sender: FDA-Public Use
  Company Number: US-B.I. PHARMACEUTICALS,INC./RIDGEFIELD-2018-BI-031267

PATIENT
  Age: 51 Year
  Sex: Male

DRUGS (5)
  1. XGEVA [Concomitant]
     Active Substance: DENOSUMAB
     Indication: DRUG THERAPY
     Dosage: FORMULATION: INTRAMUSCULAR
     Route: 030
     Dates: start: 201610
  2. GILOTRIF [Suspect]
     Active Substance: AFATINIB
     Indication: NON-SMALL CELL LUNG CANCER
  3. GILOTRIF [Suspect]
     Active Substance: AFATINIB
     Indication: EGFR GENE MUTATION
     Route: 048
     Dates: start: 20161001
  4. LISINOPRIL. [Concomitant]
     Active Substance: LISINOPRIL
     Indication: HYPERTENSION
     Dosage: FORM STRENGTH: 10MG; FORMULATION: CAPLET
     Route: 048
  5. AMLODIPINE [Concomitant]
     Active Substance: AMLODIPINE BESYLATE
     Indication: HYPERTENSION
     Dosage: FORM STRENGTH: 10MG; FORMULATION: CAPSULE
     Route: 048

REACTIONS (8)
  - Diarrhoea [Unknown]
  - Brain oedema [Unknown]
  - Rotator cuff syndrome [Unknown]
  - Cough [Not Recovered/Not Resolved]
  - Pulmonary fibrosis [Unknown]
  - Neoplasm swelling [Unknown]
  - Pneumonia [Recovered/Resolved]
  - Rash [Recovered/Resolved]

NARRATIVE: CASE EVENT DATE: 201611
